FAERS Safety Report 12576207 (Version 4)
Quarter: 2016Q3

REPORT INFORMATION
  Report Type: Spontaneous
  Country: ES (occurrence: ES)
  Receive Date: 20160720
  Receipt Date: 20160906
  Transmission Date: 20161109
  Serious: Yes (Other)
  Sender: FDA-Public Use
  Company Number: ES-JNJFOC-20160714265

PATIENT
  Age: 47 Year
  Sex: Male
  Weight: 100 kg

DRUGS (3)
  1. SOVALDI [Suspect]
     Active Substance: SOFOSBUVIR
     Indication: HEPATITIS C
     Dosage: COMPLETED 12 WEEK THERAPY??TREATED FOR 84 DAYS
     Route: 065
     Dates: start: 201502
  2. RIBAVIRIN. [Suspect]
     Active Substance: RIBAVIRIN
     Indication: HEPATITIS C
     Dosage: COMPLETED 12 WEEK THERAPY,??TREATED FOR 84 DAYS
     Route: 065
     Dates: start: 201502
  3. OLYSIO [Suspect]
     Active Substance: SIMEPREVIR
     Indication: HEPATITIS C
     Dosage: COMPLETED 12 WEEK THERAPY, ??TREATED FOR 84 DAYS
     Route: 065
     Dates: start: 201502

REACTIONS (2)
  - Hepatitis C [Unknown]
  - Drug ineffective [Unknown]
